FAERS Safety Report 10779020 (Version 1)
Quarter: 2015Q1

REPORT INFORMATION
  Report Type: Spontaneous
  Country: US (occurrence: None)
  Receive Date: 20150205
  Receipt Date: 20150205
  Transmission Date: 20150721
  Serious: No
  Sender: FDA-Public Use
  Company Number: None

PATIENT
  Age: 64 Year
  Sex: Female
  Weight: 48.08 kg

DRUGS (1)
  1. TRAVATAN Z [Suspect]
     Active Substance: TRAVOPROST
     Indication: GLAUCOMA
     Dosage: 1 DROP IN EACH EYE BEDTIME DROPS IN THE EYE
     Dates: start: 20141217, end: 20141219

REACTIONS (1)
  - Pain [None]

NARRATIVE: CASE EVENT DATE: 20141217
